FAERS Safety Report 10643292 (Version 1)
Quarter: 2014Q4

REPORT INFORMATION
  Report Type: Report from Study
  Country: US (occurrence: None)
  Receive Date: 20141128
  Receipt Date: 20141128
  Transmission Date: 20150529
  Serious: Yes (Hospitalization)
  Sender: FDA-Public Use
  Company Number: 2415582

PATIENT
  Age: 77 Year
  Sex: Male
  Weight: 83 kg

DRUGS (3)
  1. RITUXIMAB [Suspect]
     Active Substance: RITUXIMAB
     Indication: CHRONIC LYMPHOCYTIC LEUKAEMIA
     Dosage: 1560 MG MILLIGRAM(S) (CYCLICAL)
     Dates: start: 20120604, end: 20120606
  2. NIPENT [Suspect]
     Active Substance: PENTOSTATIN
     Indication: CHRONIC LYMPHOCYTIC LEUKAEMIA
     Dosage: 7.83 MG MILIGRAM(S), CYCLIC, UKNOWN
     Dates: start: 20120604, end: 20120604
  3. CYCLOPHOSPHAMIDE. [Suspect]
     Active Substance: CYCLOPHOSPHAMIDE
     Indication: CHRONIC LYMPHOCYTIC LEUKAEMIA
     Dosage: 1170 MG MILLIGRAM(S), CYCLICAL, UKNOWN
     Dates: start: 20120604, end: 20120604

REACTIONS (2)
  - Tumour lysis syndrome [None]
  - Hypersensitivity [None]

NARRATIVE: CASE EVENT DATE: 20120606
